FAERS Safety Report 18887824 (Version 1)
Quarter: 2021Q1

REPORT INFORMATION
  Report Type: Report from Study
  Country: DE (occurrence: DE)
  Receive Date: 20210212
  Receipt Date: 20210212
  Transmission Date: 20210420
  Serious: Yes (Hospitalization)
  Sender: FDA-Public Use
  Company Number: DE-TAKEDA-2021TUS008598

PATIENT
  Age: 10 Year
  Sex: Male
  Weight: 32 kg

DRUGS (3)
  1. HISTAKUT [Concomitant]
     Active Substance: DIMETHINDENE MALEATE
     Indication: ANTIALLERGIC THERAPY
     Dosage: 3 MILLIGRAM, 1/WEEK
     Route: 042
     Dates: start: 20210129, end: 20210129
  2. SOLU?DECORTIN [Concomitant]
     Active Substance: PREDNISOLONE SODIUM SUCCINATE
     Dosage: 100 MILLIGRAM, 1/WEEK
     Route: 042
     Dates: start: 20210129, end: 20210129
  3. IDURSULFASE [Suspect]
     Active Substance: IDURSULFASE
     Indication: MUCOPOLYSACCHARIDOSIS II
     Dosage: 18 MILLIGRAM, 1/WEEK
     Route: 042
     Dates: start: 20210129, end: 20210129

REACTIONS (3)
  - Product dose omission issue [Recovered/Resolved]
  - Fall [Recovered/Resolved]
  - Contusion [Not Recovered/Not Resolved]

NARRATIVE: CASE EVENT DATE: 20210204
